FAERS Safety Report 7931630-8 (Version None)
Quarter: 2011Q4

REPORT INFORMATION
  Report Type: 
  Country: None (occurrence: None)
  Receive Date: 20111121
  Receipt Date: 20111108
  Transmission Date: 20120403
  Serious: Yes (Hospitalization, Disabling, Other)
  Sender: FDA-Public Use
  Company Number: PHHY2011BR099720

PATIENT
  Sex: Female

DRUGS (9)
  1. SCOPOLAMINE [Concomitant]
     Dosage: UNK UKN, UNK
  2. ATENOLOL [Concomitant]
     Dosage: UNK UKN, UNK
  3. ATROVENT [Concomitant]
     Dosage: UNK UKN, UNK
  4. RANITIDINE [Concomitant]
     Dosage: UNK UKN, UNK
  5. ACETYLSALICYLIC ACID SRT [Concomitant]
     Dosage: UNK UKN, UNK
  6. LACTULOSE [Concomitant]
     Dosage: UNK UKN, UNK
  7. EXFORGE HCT [Suspect]
     Indication: HYPERTENSION
     Dosage: 2 DF (160/5/12.5 MG), DAILY
  8. METFORMIN HCL [Concomitant]
     Dosage: 850 MG, UNK
  9. SIMVASTATIN [Concomitant]
     Dosage: 20 MG, UNK

REACTIONS (5)
  - APHAGIA [None]
  - DYSPHAGIA [None]
  - CEREBROVASCULAR ACCIDENT [None]
  - BLOOD PRESSURE INADEQUATELY CONTROLLED [None]
  - HEMIPARESIS [None]
